FAERS Safety Report 20298645 (Version 1)
Quarter: 2022Q1

REPORT INFORMATION
  Report Type: Spontaneous
  Country: CN (occurrence: CN)
  Receive Date: 20220105
  Receipt Date: 20220105
  Transmission Date: 20220423
  Serious: Yes (Other)
  Sender: FDA-Public Use
  Company Number: CN-009507513-2112CHN010250

PATIENT
  Age: 41 Year
  Sex: Female
  Weight: 52 kg

DRUGS (6)
  1. CILASTATIN SODIUM\IMIPENEM [Suspect]
     Active Substance: CILASTATIN SODIUM\IMIPENEM
     Indication: Anti-infective therapy
     Dosage: 1 GRAM, QID
     Route: 041
     Dates: start: 20211213, end: 20211215
  2. SHENG XUE XIAO BAN [Concomitant]
     Indication: Platelet count abnormal
     Dosage: 1.8 GRAM, TID
     Route: 048
     Dates: start: 20211210, end: 20211217
  3. FOLIC ACID [Concomitant]
     Active Substance: FOLIC ACID
     Indication: Anaemia
     Dosage: 5 MG, TID
     Route: 048
     Dates: start: 20211213, end: 20211228
  4. JU HE LI [Concomitant]
     Indication: Platelet count abnormal
     Dosage: 3 MG, QD
     Route: 058
     Dates: start: 20211213, end: 20211224
  5. ERYTHROPOIETIN [Concomitant]
     Active Substance: ERYTHROPOIETIN
     Indication: Anaemia
     Dosage: 10000 UNITS, ONCE EVERY TWO DAYS
     Route: 058
     Dates: start: 20211210, end: 20211227
  6. RUI BAI [Concomitant]
     Indication: White blood cell count abnormal
     Dosage: 300 MICROGRAM, QD
     Route: 058
     Dates: start: 20211213, end: 20211213

REACTIONS (4)
  - Epilepsy [Recovered/Resolved]
  - Cerebrovascular accident [Unknown]
  - Dizziness [Recovered/Resolved]
  - Vomiting [Recovered/Resolved]

NARRATIVE: CASE EVENT DATE: 20211201
